FAERS Safety Report 4727761-6 (Version None)
Quarter: 2005Q3

REPORT INFORMATION
  Report Type: 
  Country: None (occurrence: None)
  Receive Date: 20050727
  Receipt Date: 20050719
  Transmission Date: 20060218
  Serious: Yes (Death)
  Sender: FDA-Public Use
  Company Number: 2005EU001583

PATIENT
  Age: 37 Year
  Sex: Female

DRUGS (8)
  1. FK 506(TACROLIMUS CAPSULES) [Suspect]
     Indication: RENAL AND PANCREAS TRANSPLANT
     Dosage: 6.00 MG/D, ORAL
     Route: 048
     Dates: start: 20040308, end: 20050121
  2. RAPAMUNE [Suspect]
     Indication: RENAL AND PANCREAS TRANSPLANT
     Dosage: 3.00 MG/D, ORAL
     Route: 048
     Dates: start: 20040308, end: 20050121
  3. FURON (FUROSEMIDE) [Concomitant]
  4. ATROP (ATROPINE SULFATE) [Concomitant]
  5. ROCALTROL [Concomitant]
  6. PRESTARIUM (PERINDOPRIL) [Concomitant]
  7. LORAM (LORAZEPAM) [Concomitant]
  8. HELICID (OMEPRAZOLE) [Concomitant]

REACTIONS (2)
  - COMA [None]
  - SEPSIS [None]
